FAERS Safety Report 17532447 (Version 1)
Quarter: 2020Q1

REPORT INFORMATION
  Report Type: Spontaneous
  Country: JP (occurrence: JP)
  Receive Date: 20200312
  Receipt Date: 20200312
  Transmission Date: 20200409
  Serious: Yes (Death, Other)
  Sender: FDA-Public Use
  Company Number: JP-JNJFOC-20200300169

PATIENT
  Age: 74 Year
  Sex: Male

DRUGS (4)
  1. ZYTIGA [Suspect]
     Active Substance: ABIRATERONE ACETATE
     Indication: HORMONE-REFRACTORY PROSTATE CANCER
     Dosage: UNKNOWN
     Route: 048
     Dates: start: 20180622, end: 201901
  2. PREDONINE [Concomitant]
     Active Substance: PREDNISOLONE
     Indication: HORMONE-REFRACTORY PROSTATE CANCER
     Route: 048
     Dates: start: 20180622
  3. ZYTIGA [Suspect]
     Active Substance: ABIRATERONE ACETATE
     Dosage: UNKNOWN
     Route: 048
     Dates: start: 201904
  4. XTANDI [Concomitant]
     Active Substance: ENZALUTAMIDE
     Indication: HORMONE-REFRACTORY PROSTATE CANCER
     Route: 048
     Dates: start: 201901, end: 201903

REACTIONS (2)
  - Drug ineffective [Fatal]
  - Death [Fatal]
